FAERS Safety Report 5494095-4 (Version None)
Quarter: 2007Q4

REPORT INFORMATION
  Report Type: 
  Country: None (occurrence: None)
  Receive Date: 20071022
  Receipt Date: 20071008
  Transmission Date: 20080405
  Serious: Yes (Death, Other)
  Sender: FDA-Public Use
  Company Number: 2007333186

PATIENT
  Age: 11 Year
  Sex: Male
  Weight: 45 kg

DRUGS (7)
  1. BENADRYL [Suspect]
     Indication: DERMATITIS CONTACT
     Dosage: UNSPECIFIED
  2. MORPHINE [Suspect]
     Dosage: UNSPECIFIED
  3. CODEINE SUL TAB [Suspect]
     Dosage: UNSPECIFIED
  4. OXAZEPAM [Suspect]
     Dosage: UNSPECIFIED
  5. DIAZEPAM [Suspect]
     Dosage: UNSPECIFIED
  6. ATROPINE [Suspect]
     Dosage: UNSPECIFIED
  7. PHENERGAN [Suspect]
     Indication: VOMITING
     Dosage: UNSPECIFIED, RECTAL
     Route: 054

REACTIONS (11)
  - ASPIRATION [None]
  - BLOOD BICARBONATE DECREASED [None]
  - BLOOD CREATINE INCREASED [None]
  - BLOOD GLUCOSE INCREASED [None]
  - BLOOD PH DECREASED [None]
  - BLOOD POTASSIUM INCREASED [None]
  - CARDIAC ARREST [None]
  - LOSS OF CONSCIOUSNESS [None]
  - OVERDOSE [None]
  - VOMITING [None]
  - WHITE BLOOD CELL COUNT INCREASED [None]
